FAERS Safety Report 13504530 (Version 3)
Quarter: 2019Q1

REPORT INFORMATION
  Report Type: Spontaneous
  Country: US (occurrence: US)
  Receive Date: 20170502
  Receipt Date: 20190303
  Transmission Date: 20190417
  Serious: No
  Sender: FDA-Public Use
  Company Number: US-IMPAX LABORATORIES, INC-2017-IPXL-00689

PATIENT
  Age: 58 Year
  Sex: Male
  Weight: 91 kg

DRUGS (8)
  1. RYTARY [Suspect]
     Active Substance: CARBIDOPA\LEVODOPA
     Dosage: 48.75/195MG, 2 CAPSULE, 4 /DAY
     Route: 048
     Dates: start: 2017
  2. RYTARY [Suspect]
     Active Substance: CARBIDOPA\LEVODOPA
     Indication: PARKINSON^S DISEASE
     Dosage: 2 CAPSULES (ONE OF 36.25/145 MG + ONE OF 48.75/195 MG), 3 /DAY
     Route: 048
     Dates: start: 2016
  3. RYTARY [Suspect]
     Active Substance: CARBIDOPA\LEVODOPA
     Dosage: 2 CAPSULES (ONE OF 36.25/145 MG + ONE OF 48.75/195 MG), 3 /DAY
     Route: 048
     Dates: start: 2016, end: 2017
  4. LISINOPRIL. [Concomitant]
     Active Substance: LISINOPRIL
     Indication: CARDIAC DISORDER
     Dosage: 10 MG, UNK
     Route: 065
  5. RASAGILINE MESYLATE. [Suspect]
     Active Substance: RASAGILINE MESYLATE
     Indication: PARKINSON^S DISEASE
     Dosage: 1 MG, UNK
     Route: 048
  6. ALLOPURINOL. [Concomitant]
     Active Substance: ALLOPURINOL
     Indication: CHOLELITHIASIS
     Dosage: 300 MG, UNK
     Route: 065
  7. AZILECT [Concomitant]
     Active Substance: RASAGILINE MESYLATE
     Indication: PARKINSON^S DISEASE
     Dosage: 1 MG
     Route: 048
  8. ROSUVASTATIN. [Concomitant]
     Active Substance: ROSUVASTATIN
     Indication: CARDIAC DISORDER
     Dosage: 5 MG, UNK
     Route: 065

REACTIONS (3)
  - Drug effect incomplete [Unknown]
  - Nasopharyngitis [Not Recovered/Not Resolved]
  - Tremor [Not Recovered/Not Resolved]

NARRATIVE: CASE EVENT DATE: 20170309
